FAERS Safety Report 7688024-2 (Version None)
Quarter: 2011Q3

REPORT INFORMATION
  Report Type: 
  Country: None (occurrence: None)
  Receive Date: 20110817
  Receipt Date: 20110812
  Transmission Date: 20111222
  Serious: No
  Sender: FDA-Public Use
  Company Number: US-PFIZER INC-2011186342

PATIENT
  Sex: Female

DRUGS (1)
  1. LATANOPROST [Suspect]
     Dosage: 1 GTT, 1X/DAY
     Dates: start: 20110801

REACTIONS (3)
  - PAIN [None]
  - MALAISE [None]
  - INFLUENZA LIKE ILLNESS [None]
